FAERS Safety Report 18220968 (Version 1)
Quarter: 2020Q3

REPORT INFORMATION
  Report Type: Spontaneous
  Country: US (occurrence: US)
  Receive Date: 20200902
  Receipt Date: 20200902
  Transmission Date: 20201103
  Serious: No
  Sender: FDA-Public Use
  Company Number: US-JNJFOC-20200847048

PATIENT
  Age: 65 Year
  Sex: Male
  Weight: 72.64 kg

DRUGS (1)
  1. IMODIUM MULTI?SYMPTOM RELIEF [Suspect]
     Active Substance: DIMETHICONE\LOPERAMIDE HYDROCHLORIDE
     Indication: DIARRHOEA
     Dosage: 4 TABLETS 2X A DAY
     Route: 048
     Dates: end: 20200825

REACTIONS (1)
  - Incorrect dose administered [Unknown]
